FAERS Safety Report 5288463-3 (Version None)
Quarter: 2007Q2

REPORT INFORMATION
  Report Type: 
  Country: None (occurrence: None)
  Receive Date: 20070405
  Receipt Date: 20070323
  Transmission Date: 20071010
  Serious: Yes (Other)
  Sender: FDA-Public Use
  Company Number: FR-ROCHE-489534

PATIENT
  Age: 49 Year
  Sex: Female
  Weight: 65 kg

DRUGS (3)
  1. PEG-INTERFERON A-2A (RO 25-8310) [Suspect]
     Route: 058
     Dates: start: 20041112, end: 20050225
  2. DOLIPRANE [Concomitant]
     Dates: start: 20041029, end: 20050225
  3. ASPEGIC 1000 [Concomitant]
     Dates: start: 20041013

REACTIONS (1)
  - PERICARDIAL EFFUSION [None]
